FAERS Safety Report 10474741 (Version 2)
Quarter: 2014Q3

REPORT INFORMATION
  Report Type: Spontaneous
  Country: US (occurrence: US)
  Receive Date: 20140925
  Receipt Date: 20140930
  Transmission Date: 20150326
  Serious: No
  Sender: FDA-Public Use
  Company Number: US-009507513-1409USA011836

PATIENT
  Sex: Male

DRUGS (1)
  1. NASONEX [Suspect]
     Active Substance: MOMETASONE FUROATE
     Dosage: STRENGTH: 50 (UNITS NOT PROVIDED), DOSE UNSPECIFIED
     Route: 045

REACTIONS (2)
  - Drug ineffective [Unknown]
  - Product odour abnormal [Unknown]
